FAERS Safety Report 5192646-0 (Version None)
Quarter: 2006Q4

REPORT INFORMATION
  Report Type: 
  Country: None (occurrence: None)
  Receive Date: 20061228
  Receipt Date: 20061220
  Transmission Date: 20070319
  Serious: Yes (Hospitalization)
  Sender: FDA-Public Use
  Company Number: FR-BAYER-200611215BFR

PATIENT
  Age: 67 Year
  Sex: Male
  Weight: 82 kg

DRUGS (17)
  1. SORAFENIB [Suspect]
     Indication: RENAL CELL CARCINOMA STAGE UNSPECIFIED
     Route: 048
     Dates: start: 20060905, end: 20061010
  2. SORAFENIB [Suspect]
     Route: 048
     Dates: start: 20061211
  3. SORAFENIB [Suspect]
     Route: 048
     Dates: start: 20060801, end: 20060905
  4. SORAFENIB [Suspect]
     Route: 048
     Dates: start: 20061010, end: 20061114
  5. SORAFENIB [Suspect]
     Route: 048
     Dates: start: 20060626, end: 20060801
  6. SORAFENIB [Suspect]
     Route: 048
     Dates: start: 20061114, end: 20061211
  7. SORAFENIB [Suspect]
     Route: 048
     Dates: start: 20060529, end: 20060626
  8. FORTZAAR [Concomitant]
     Indication: HYPERTENSION
     Route: 065
     Dates: start: 19910101
  9. DURAGESIC-100 [Concomitant]
     Indication: CHEST PAIN
     Route: 065
     Dates: start: 20051001
  10. DEROXAT [Concomitant]
     Indication: DEPRESSION
     Route: 065
     Dates: start: 20060101
  11. LOXEN [Concomitant]
     Indication: HYPERTENSION
     Route: 065
     Dates: start: 20060101
  12. OMEPRAZOLE [Concomitant]
     Indication: PROPHYLAXIS AGAINST GASTROINTESTINAL ULCER
     Route: 065
     Dates: start: 20060101
  13. IMODIUM [Concomitant]
     Indication: DIARRHOEA
     Route: 065
     Dates: start: 20060601
  14. GLYCO-THYMOLINE [Concomitant]
     Indication: STOMATITIS
     Route: 002
     Dates: start: 20060905
  15. MAXICAINE [Concomitant]
     Indication: STOMATITIS
     Route: 065
     Dates: start: 20060905
  16. QUESTRAN [Concomitant]
     Indication: DIARRHOEA
     Route: 065
     Dates: start: 20061003
  17. ZOMETA [Concomitant]
     Indication: CHEST PAIN
     Route: 065
     Dates: start: 20050801

REACTIONS (2)
  - HYPOCALCAEMIA [None]
  - HYPOMAGNESAEMIA [None]
